FAERS Safety Report 15867936 (Version 1)
Quarter: 2019Q1

REPORT INFORMATION
  Report Type: Spontaneous
  Country: FR (occurrence: FR)
  Receive Date: 20190125
  Receipt Date: 20190125
  Transmission Date: 20190417
  Serious: Yes (Hospitalization)
  Sender: FDA-Public Use
  Company Number: FR-TEVA-2019-FR-1003085

PATIENT
  Age: 7 Year
  Sex: Female
  Weight: 36 kg

DRUGS (1)
  1. CARBOPLATINE [Suspect]
     Active Substance: CARBOPLATIN
     Indication: ASTROCYTOMA
     Route: 042
     Dates: start: 20181116, end: 20181116

REACTIONS (4)
  - Cough [Recovered/Resolved]
  - Hypotension [Recovered/Resolved]
  - Dyspnoea [Recovered/Resolved]
  - Malaise [Recovered/Resolved]

NARRATIVE: CASE EVENT DATE: 20181116
